FAERS Safety Report 16422933 (Version 1)
Quarter: 2019Q2

REPORT INFORMATION
  Report Type: Spontaneous
  Country: ES (occurrence: ES)
  Receive Date: 20190612
  Receipt Date: 20190612
  Transmission Date: 20190711
  Serious: Yes (Life-Threatening, Hospitalization)
  Sender: FDA-Public Use
  Company Number: ES-WHANIN PHARM. CO., LTD.-2019M1055881

PATIENT
  Age: 44 Year
  Sex: Male

DRUGS (2)
  1. CLOZAPINE. [Suspect]
     Active Substance: CLOZAPINE
     Indication: PSYCHOTIC DISORDER
     Dosage: UNK
  2. PALIPERIDONE PALMITATE [Suspect]
     Active Substance: PALIPERIDONE PALMITATE
     Indication: PSYCHOTIC DISORDER
     Dosage: 150 MILLIGRAM
     Route: 030

REACTIONS (4)
  - Neuroleptic malignant syndrome [Unknown]
  - Septic shock [Unknown]
  - Multiple organ dysfunction syndrome [Unknown]
  - Pneumonia [Unknown]
